FAERS Safety Report 9301864 (Version 2)
Quarter: 2013Q2

REPORT INFORMATION
  Report Type: Spontaneous
  Country: ES (occurrence: ES)
  Receive Date: 20130521
  Receipt Date: 20130529
  Transmission Date: 20140414
  Serious: Yes (Life-Threatening, Hospitalization, Other)
  Sender: FDA-Public Use
  Company Number: ES-009507513-1304ESP016492

PATIENT
  Age: 20 Year
  Sex: Female
  Weight: 50 kg

DRUGS (1)
  1. NUVARING [Suspect]
     Indication: CONTRACEPTION
     Dosage: UNK, ETONOGESTREL 0.120 MG/ETHYNIL ESTRADIOL 0.015 MG
     Route: 067
     Dates: start: 201203, end: 201207

REACTIONS (5)
  - Pleural effusion [Recovered/Resolved]
  - Pulmonary infarction [Recovered/Resolved]
  - Pulmonary embolism [Recovered/Resolved]
  - Deep vein thrombosis [Recovered/Resolved]
  - Uterine leiomyoma [Recovered/Resolved]
